FAERS Safety Report 19469209 (Version 1)
Quarter: 2021Q2

REPORT INFORMATION
  Report Type: Report from Study
  Country: FR (occurrence: FR)
  Receive Date: 20210628
  Receipt Date: 20210628
  Transmission Date: 20210717
  Serious: Yes (Hospitalization, Other)
  Sender: FDA-Public Use
  Company Number: FR-TAKEDA-FR201812799

PATIENT
  Age: 65 Year
  Sex: Female
  Weight: 40.3 kg

DRUGS (27)
  1. TEDUGLUTIDE [Suspect]
     Active Substance: TEDUGLUTIDE
     Dosage: 1.6 MG, 1X/DAY:QD(EVERY 7 DAYS)
     Route: 065
     Dates: start: 20171209, end: 20180103
  2. TEDUGLUTIDE [Suspect]
     Active Substance: TEDUGLUTIDE
     Dosage: 1.6 MG, 1X/DAY:QD(EVERY 7 DAYS)
     Route: 065
     Dates: start: 20180103
  3. UVEDOSE [Concomitant]
     Active Substance: CHOLECALCIFEROL
     Indication: OSTEOPOROSIS
  4. TEDUGLUTIDE [Suspect]
     Active Substance: TEDUGLUTIDE
     Dosage: 1.8 MG, 1X/DAY:QD(EVERY 7 DAYS)
     Route: 065
     Dates: start: 20160920, end: 20171130
  5. TEDUGLUTIDE [Suspect]
     Active Substance: TEDUGLUTIDE
     Dosage: 1.8 MG, 1X/DAY:QD(EVERY 7 DAYS)
     Route: 065
     Dates: start: 20160920, end: 20171130
  6. TEDUGLUTIDE [Suspect]
     Active Substance: TEDUGLUTIDE
     Dosage: 1.6 MG, 1X/DAY:QD(EVERY 7 DAYS)
     Route: 065
     Dates: start: 20171209, end: 20180103
  7. ACLASTA [Concomitant]
     Active Substance: ZOLEDRONIC ACID
     Indication: OSTEOPOROSIS PROPHYLAXIS
     Dosage: 5.0 MILLIGRAM, ONCE A YEAR
     Route: 042
     Dates: start: 20200316
  8. TEDUGLUTIDE [Suspect]
     Active Substance: TEDUGLUTIDE
     Dosage: 1.6 MG, 1X/DAY:QD(EVERY 7 DAYS)
     Route: 065
     Dates: start: 20171130, end: 20171209
  9. MAGNESIUM CITRATE. [Concomitant]
     Active Substance: MAGNESIUM CITRATE
     Indication: SUPPLEMENTATION THERAPY
     Dosage: 200 MILLIGRAM, BID
     Route: 048
     Dates: start: 20190218, end: 2020
  10. TEDUGLUTIDE [Suspect]
     Active Substance: TEDUGLUTIDE
     Dosage: 1.6 MG, 1X/DAY:QD(EVERY 7 DAYS)
     Route: 065
     Dates: start: 20180103
  11. COUMADINE [Concomitant]
     Active Substance: WARFARIN SODIUM
     Indication: PROPHYLAXIS
     Dosage: 20.50 MILLIGRAM, QD
     Route: 048
     Dates: start: 20200316
  12. NICOPATCH [Concomitant]
     Active Substance: NICOTINE
     Indication: SMOKING CESSATION THERAPY
     Dosage: 21 MILLIGRAM, QD
     Route: 058
  13. TEDUGLUTIDE [Suspect]
     Active Substance: TEDUGLUTIDE
     Indication: SHORT-BOWEL SYNDROME
     Dosage: 2 MG, 1X/DAY:QD(EVERY 7 DAYS)
     Route: 065
     Dates: start: 20160322, end: 20160920
  14. TEDUGLUTIDE [Suspect]
     Active Substance: TEDUGLUTIDE
     Dosage: 1.6 MG, 1X/DAY:QD(EVERY 7 DAYS)
     Route: 065
     Dates: start: 20171130, end: 20171209
  15. TEDUGLUTIDE [Suspect]
     Active Substance: TEDUGLUTIDE
     Dosage: 1.6 MG, 1X/DAY:QD(EVERY 7 DAYS)
     Route: 065
     Dates: start: 20171130, end: 20171209
  16. TEDUGLUTIDE [Suspect]
     Active Substance: TEDUGLUTIDE
     Dosage: 1.6 MG, 1X/DAY:QD(EVERY 7 DAYS)
     Route: 065
     Dates: start: 20180103
  17. PICOLITE [Concomitant]
     Indication: PRODUCT USED FOR UNKNOWN INDICATION
  18. TEDUGLUTIDE [Suspect]
     Active Substance: TEDUGLUTIDE
     Indication: SHORT-BOWEL SYNDROME
     Dosage: 2 MG, 1X/DAY:QD(EVERY 7 DAYS)
     Route: 065
     Dates: start: 20160322, end: 20160920
  19. TEDUGLUTIDE [Suspect]
     Active Substance: TEDUGLUTIDE
     Dosage: 1.8 MG, 1X/DAY:QD(EVERY 7 DAYS)
     Route: 065
     Dates: start: 20160920, end: 20171130
  20. TEDUGLUTIDE [Suspect]
     Active Substance: TEDUGLUTIDE
     Dosage: 1.6 MG, 1X/DAY:QD(EVERY 7 DAYS)
     Route: 065
     Dates: start: 20180103
  21. TEDUGLUTIDE [Suspect]
     Active Substance: TEDUGLUTIDE
     Indication: SHORT-BOWEL SYNDROME
     Dosage: 2 MG, 1X/DAY:QD(EVERY 7 DAYS)
     Route: 065
     Dates: start: 20160322, end: 20160920
  22. TEDUGLUTIDE [Suspect]
     Active Substance: TEDUGLUTIDE
     Indication: SHORT-BOWEL SYNDROME
     Dosage: 2 MG, 1X/DAY:QD(EVERY 7 DAYS)
     Route: 065
     Dates: start: 20160322, end: 20160920
  23. TEDUGLUTIDE [Suspect]
     Active Substance: TEDUGLUTIDE
     Dosage: 1.6 MG, 1X/DAY:QD(EVERY 7 DAYS)
     Route: 065
     Dates: start: 20171130, end: 20171209
  24. TEDUGLUTIDE [Suspect]
     Active Substance: TEDUGLUTIDE
     Dosage: 1.8 MG, 1X/DAY:QD(EVERY 7 DAYS)
     Route: 065
     Dates: start: 20160920, end: 20171130
  25. TEDUGLUTIDE [Suspect]
     Active Substance: TEDUGLUTIDE
     Dosage: 1.6 MG, 1X/DAY:QD(EVERY 7 DAYS)
     Route: 065
     Dates: start: 20171209, end: 20180103
  26. TEDUGLUTIDE [Suspect]
     Active Substance: TEDUGLUTIDE
     Dosage: 1.6 MG, 1X/DAY:QD(EVERY 7 DAYS)
     Route: 065
     Dates: start: 20171209, end: 20180103
  27. DAFALGAN CODEINE [Concomitant]
     Active Substance: ACETAMINOPHEN\CODEINE PHOSPHATE
     Indication: DIARRHOEA

REACTIONS (1)
  - Acute respiratory distress syndrome [Recovered/Resolved]

NARRATIVE: CASE EVENT DATE: 20171215
